FAERS Safety Report 7503543-7 (Version None)
Quarter: 2011Q2

REPORT INFORMATION
  Report Type: 
  Country: None (occurrence: None)
  Receive Date: 20110525
  Receipt Date: 20110512
  Transmission Date: 20111010
  Serious: Yes (Hospitalization)
  Sender: FDA-Public Use
  Company Number: ES-ELI_LILLY_AND_COMPANY-ES201105003371

PATIENT
  Sex: Female
  Weight: 62.3 kg

DRUGS (4)
  1. GEMCITABINE HYDROCHLORIDE [Suspect]
     Indication: NON-SMALL CELL LUNG CANCER
     Dosage: 1250 MG, UNK
     Dates: start: 20110309, end: 20110504
  2. CISPLATIN [Suspect]
     Indication: NON-SMALL CELL LUNG CANCER
     Dosage: 75 MG, UNK
     Dates: start: 20110309
  3. NECITUMUMAB (11F8) (LY3012211) [Suspect]
     Indication: NON-SMALL CELL LUNG CANCER
     Dosage: 800 MG, UNK
     Dates: start: 20110309, end: 20110504
  4. TAZOCEL [Concomitant]
     Dosage: 4 G, EVERY 6 HRS
     Route: 042
     Dates: start: 20110511

REACTIONS (1)
  - SEPSIS [None]
